FAERS Safety Report 10221701 (Version 1)
Quarter: 2014Q2

REPORT INFORMATION
  Report Type: Spontaneous
  Country: US (occurrence: US)
  Receive Date: 20140606
  Receipt Date: 20140606
  Transmission Date: 20141212
  Serious: Yes (Other)
  Sender: FDA-Public Use
  Company Number: US-PFIZER INC-2014154350

PATIENT
  Sex: Male
  Weight: 97.51 kg

DRUGS (1)
  1. ZOLOFT [Suspect]
     Indication: DEPRESSION
     Dosage: 100 MG, DAILY
     Dates: start: 2014

REACTIONS (3)
  - Suicidal ideation [Unknown]
  - Insomnia [Unknown]
  - Nervousness [Unknown]
